FAERS Safety Report 7652326-6 (Version None)
Quarter: 2011Q3

REPORT INFORMATION
  Report Type: 
  Country: None (occurrence: None)
  Receive Date: 20110728
  Receipt Date: 20110719
  Transmission Date: 20111222
  Serious: Yes (Other)
  Sender: FDA-Public Use
  Company Number: USA/USA/11/0019124

PATIENT
  Age: 54 Year
  Sex: Female
  Weight: 99.7913 kg

DRUGS (4)
  1. CITALOPRAM HYDROBROMIDE [Suspect]
     Indication: STRESS
     Dosage: 20 MG, 1 IN 1 D, ORAL
     Route: 048
     Dates: start: 20110612
  2. TRIAMTERENE/HYDROCHYLOROTHIAZIDE (DYAZIDE) [Concomitant]
  3. PRILOSEC [Concomitant]
  4. MULTI-VITAMINS [Concomitant]

REACTIONS (3)
  - PYREXIA [None]
  - VIRAL INFECTION [None]
  - FOOD AVERSION [None]
